FAERS Safety Report 6691399-4 (Version None)
Quarter: 2010Q2

REPORT INFORMATION
  Report Type: 
  Country: None (occurrence: None)
  Receive Date: 20100416
  Receipt Date: 20100401
  Transmission Date: 20101027
  Serious: Yes (Other)
  Sender: FDA-Public Use
  Company Number: JHP201000129

PATIENT
  Age: 34 Year
  Sex: Female
  Weight: 45 kg

DRUGS (4)
  1. PITRESSIN [Suspect]
     Indication: HAEMOSTASIS
     Dosage: 20 ML OF 1U/ML INTRAMYOMETRIALLY
  2. BUPIVACAINE HCL [Concomitant]
  3. BUPRENORPHINE (BUPRENORPHINE) [Concomitant]
  4. LACTATE RINGER (CALCIUM CHLORIDE ANHYDROUS, POTASSIUM CHLORIDE, SODIUM [Concomitant]

REACTIONS (9)
  - GRAND MAL CONVULSION [None]
  - HYPERTENSION [None]
  - OFF LABEL USE [None]
  - PALLOR [None]
  - PULMONARY OEDEMA [None]
  - RADIAL PULSE ABNORMAL [None]
  - SINUS BRADYCARDIA [None]
  - TACHYCARDIA [None]
  - UNRESPONSIVE TO STIMULI [None]
